FAERS Safety Report 13113713 (Version 5)
Quarter: 2017Q1

REPORT INFORMATION
  Report Type: Report from Study
  Country: CA (occurrence: CA)
  Receive Date: 20170113
  Receipt Date: 20170217
  Transmission Date: 20170428
  Serious: Yes (Other)
  Sender: FDA-Public Use
  Company Number: CA-JNJFOC-20170101401

PATIENT
  Age: 73 Year
  Sex: Male

DRUGS (1)
  1. DARZALEX [Suspect]
     Active Substance: DARATUMUMAB
     Indication: PLASMA CELL MYELOMA
     Route: 042
     Dates: start: 20161222

REACTIONS (8)
  - Neuropathy peripheral [Unknown]
  - Dizziness [Unknown]
  - Insomnia [Unknown]
  - Dysgeusia [Unknown]
  - Urinary tract infection [Unknown]
  - Burning sensation [Recovered/Resolved]
  - Chills [Unknown]
  - Hyperaesthesia [Unknown]

NARRATIVE: CASE EVENT DATE: 20161222
